FAERS Safety Report 7717365-5 (Version None)
Quarter: 2011Q3

REPORT INFORMATION
  Report Type: 
  Country: None (occurrence: None)
  Receive Date: 20110823
  Receipt Date: 20110608
  Transmission Date: 20111222
  Serious: Yes (Hospitalization)
  Sender: FDA-Public Use
  Company Number: 20110608CINRY2044

PATIENT
  Age: 45 Year
  Sex: Female

DRUGS (1)
  1. CINRYZE [Suspect]
     Indication: HEREDITARY ANGIOEDEMA
     Dosage: (ONCE), INTRAVENOUS
     Route: 042
     Dates: start: 20110506, end: 20110506

REACTIONS (3)
  - POOR VENOUS ACCESS [None]
  - ANGIOEDEMA [None]
  - HEREDITARY ANGIOEDEMA [None]
